FAERS Safety Report 11194274 (Version 1)
Quarter: 2015Q2

REPORT INFORMATION
  Report Type: Report from Study
  Country: BR (occurrence: BR)
  Receive Date: 20150616
  Receipt Date: 20150616
  Transmission Date: 20150821
  Serious: Yes (Hospitalization)
  Sender: FDA-Public Use
  Company Number: PHHY2015BR068989

PATIENT
  Age: 94 Year
  Sex: Female
  Weight: 64 kg

DRUGS (1)
  1. EXELON PATCH [Suspect]
     Active Substance: RIVASTIGMINE
     Indication: CONFUSIONAL STATE
     Dosage: PATCH 5 (CM2) OR CONTAINS 9 MG RIVASTIGMINE BASE
     Route: 062
     Dates: start: 20150506, end: 20150508

REACTIONS (2)
  - Pneumonia [Recovering/Resolving]
  - Speech disorder [Recovered/Resolved]

NARRATIVE: CASE EVENT DATE: 20150508
